FAERS Safety Report 23695843 (Version 1)
Quarter: 2024Q2

REPORT INFORMATION
  Report Type: Spontaneous
  Country: DE (occurrence: DE)
  Receive Date: 20240402
  Receipt Date: 20240402
  Transmission Date: 20240715
  Serious: Yes (Hospitalization, Other)
  Sender: FDA-Public Use
  Company Number: DE-BIOVITRUM-2024-DE-004895

PATIENT

DRUGS (1)
  1. PEGCETACOPLAN [Suspect]
     Active Substance: PEGCETACOPLAN
     Indication: Product used for unknown indication

REACTIONS (2)
  - Breakthrough haemolysis [Unknown]
  - Haemolysis [Unknown]

NARRATIVE: CASE EVENT DATE: 20240101
